FAERS Safety Report 17861896 (Version 1)
Quarter: 2020Q2

REPORT INFORMATION
  Report Type: Spontaneous
  Country: US (occurrence: US)
  Receive Date: 20200604
  Receipt Date: 20200604
  Transmission Date: 20200714
  Serious: Yes (Hospitalization, Other)
  Sender: FDA-Public Use
  Company Number: US-EUSA PHARMA (NETHERLANDS) B.V.-2020US000121

PATIENT
  Age: 57 Year
  Sex: Male

DRUGS (7)
  1. METHYLPREDNISOLONE. [Concomitant]
     Active Substance: METHYLPREDNISOLONE
     Indication: PRODUCT USED FOR UNKNOWN INDICATION
     Dosage: 1 GRAM, OD FOR 3 DAYS
     Route: 042
  2. SYLVANT [Suspect]
     Active Substance: SILTUXIMAB
     Indication: LYMPHOCYTE ADOPTIVE THERAPY
     Dosage: 11 MG/KG
     Route: 042
  3. SYLVANT [Suspect]
     Active Substance: SILTUXIMAB
     Indication: IMMUNE EFFECTOR CELL-ASSOCIATED NEUROTOXICITY SYNDROME
  4. DEXMEDETOMIDINE. [Concomitant]
     Active Substance: DEXMEDETOMIDINE
     Indication: SEDATION
     Route: 065
  5. KETAMINE [Concomitant]
     Active Substance: KETAMINE
     Indication: SEDATION
     Route: 065
  6. ATROPINE. [Concomitant]
     Active Substance: ATROPINE
     Indication: SINUS TACHYCARDIA
     Route: 065
  7. EPINEPHRINE. [Concomitant]
     Active Substance: EPINEPHRINE
     Indication: SINUS TACHYCARDIA
     Route: 065

REACTIONS (3)
  - Off label use [Unknown]
  - Human herpesvirus 6 infection [Recovered/Resolved]
  - Product use in unapproved indication [Unknown]
